FAERS Safety Report 9928539 (Version 1)
Quarter: 2014Q1

REPORT INFORMATION
  Report Type: Spontaneous
  Country: US (occurrence: None)
  Receive Date: 20140225
  Receipt Date: 20140225
  Transmission Date: 20141002
  Serious: Yes (Other)
  Sender: FDA-Public Use
  Company Number: 2014AP001450

PATIENT
  Age: 24 Year
  Sex: Female

DRUGS (9)
  1. METFORMIN HCL TABLETS [Suspect]
     Indication: POLYCYSTIC OVARIES
  2. ETHINYL ESTRADIOL [Suspect]
     Indication: POLYCYSTIC OVARIES
  3. PROGESTERON-DEPO [Concomitant]
  4. HYDROCHLOROQUINE [Concomitant]
  5. LEVOTHYROXINE SODIUM [Concomitant]
  6. GABAPENTIN [Concomitant]
  7. CITALOPRAM [Concomitant]
  8. RABEPRAZOLE [Concomitant]
  9. SPIRONOLACTONE [Concomitant]

REACTIONS (3)
  - Gastrointestinal disorder [None]
  - Hereditary angioedema [None]
  - Condition aggravated [None]
